FAERS Safety Report 10054914 (Version 1)
Quarter: 2014Q2

REPORT INFORMATION
  Report Type: Spontaneous
  Country: US (occurrence: US)
  Receive Date: 20140402
  Receipt Date: 20140402
  Transmission Date: 20141212
  Serious: No
  Sender: FDA-Public Use
  Company Number: US-GILEAD-2014-0098448

PATIENT
  Age: 58 Year
  Sex: Female

DRUGS (2)
  1. LETAIRIS [Suspect]
     Indication: PULMONARY ARTERIAL HYPERTENSION
     Dosage: 5 MG, QD
     Route: 065
     Dates: start: 20140218, end: 20140328
  2. ADCIRCA [Concomitant]
     Dates: start: 20140218, end: 20140328

REACTIONS (2)
  - Hypotension [Unknown]
  - Vision blurred [Unknown]
